FAERS Safety Report 9664577 (Version 2)
Quarter: 2015Q4

REPORT INFORMATION
  Report Type: Report from Study
  Country: US (occurrence: US)
  Receive Date: 20131101
  Receipt Date: 20151113
  Transmission Date: 20160305
  Serious: Yes (Other)
  Sender: FDA-Public Use
  Company Number: US-ROCHE-1292615

PATIENT
  Age: 51 Year
  Sex: Female
  Weight: 51.4 kg

DRUGS (14)
  1. AVASTIN [Suspect]
     Active Substance: BEVACIZUMAB
     Route: 065
     Dates: start: 201010
  2. FEMARA [Concomitant]
     Active Substance: LETROZOLE
  3. HALAVEN [Concomitant]
     Active Substance: ERIBULIN MESYLATE
  4. AVASTIN [Suspect]
     Active Substance: BEVACIZUMAB
     Route: 065
     Dates: start: 201007
  5. ABRAXANE [Concomitant]
     Active Substance: PACLITAXEL
     Indication: BREAST CANCER
  6. ZOMETA [Concomitant]
     Active Substance: ZOLEDRONIC ACID
     Route: 065
  7. AVASTIN [Suspect]
     Active Substance: BEVACIZUMAB
     Indication: BREAST CANCER FEMALE
     Dosage: 10 MG / KG
     Route: 065
     Dates: start: 200809
  8. AVASTIN [Suspect]
     Active Substance: BEVACIZUMAB
     Route: 065
     Dates: start: 20091006
  9. HERCEPTIN [Suspect]
     Active Substance: TRASTUZUMAB
     Indication: BREAST CANCER FEMALE
     Route: 065
     Dates: start: 201010
  10. TAXOL [Concomitant]
     Active Substance: PACLITAXEL
  11. LISINOPRIL. [Concomitant]
     Active Substance: LISINOPRIL
     Route: 065
  12. FASLODEX [Concomitant]
     Active Substance: FULVESTRANT
     Route: 065
  13. CARBOPLATIN. [Concomitant]
     Active Substance: CARBOPLATIN
  14. COREG [Concomitant]
     Active Substance: CARVEDILOL
     Route: 065

REACTIONS (13)
  - Alopecia [Unknown]
  - Mitral valve incompetence [Unknown]
  - Myocardial infarction [Unknown]
  - Metastases to peritoneum [Unknown]
  - Osteoporosis [Unknown]
  - Dilatation ventricular [Unknown]
  - Weight decreased [Unknown]
  - Diastolic dysfunction [Unknown]
  - Proteinuria [Unknown]
  - Ascites [Unknown]
  - Ventricular hypokinesia [Unknown]
  - Myocardial ischaemia [Unknown]
  - Cough [Recovered/Resolved]

NARRATIVE: CASE EVENT DATE: 200901
